FAERS Safety Report 15589586 (Version 1)
Quarter: 2018Q4

REPORT INFORMATION
  Report Type: Spontaneous
  Country: US (occurrence: US)
  Receive Date: 20181106
  Receipt Date: 20181106
  Transmission Date: 20190205
  Serious: No
  Sender: FDA-Public Use
  Company Number: US-CHARTWELL PHARMA-2058447

PATIENT
  Age: 64 Year
  Sex: Female
  Weight: 55.91 kg

DRUGS (2)
  1. DOXYCYCLINE HYCLATE. [Suspect]
     Active Substance: DOXYCYCLINE HYCLATE
     Indication: DRY EYE
     Route: 048
  2. ESTROGEN [Concomitant]
     Active Substance: ESTROGENS

REACTIONS (2)
  - Gingival recession [Not Recovered/Not Resolved]
  - Tooth discolouration [Not Recovered/Not Resolved]
